FAERS Safety Report 20176252 (Version 2)
Quarter: 2021Q4

REPORT INFORMATION
  Report Type: Report from Study
  Country: ES (occurrence: ES)
  Receive Date: 20211213
  Receipt Date: 20211222
  Transmission Date: 20220303
  Serious: Yes (Hospitalization)
  Sender: FDA-Public Use
  Company Number: ES-TAKEDA-2021TUS078865

PATIENT
  Age: 13 Year
  Sex: Male
  Weight: 69 kg

DRUGS (4)
  1. IDURSULFASE [Suspect]
     Active Substance: IDURSULFASE
     Indication: Mucopolysaccharidosis II
     Dosage: 0.49 MILLIGRAM/KILOGRAM, 1/WEEK
     Route: 042
     Dates: start: 20100920
  2. IDURSULFASE [Suspect]
     Active Substance: IDURSULFASE
     Dosage: 0.5 MILLIGRAM/KILOGRAM, 1/WEEK
     Route: 042
     Dates: start: 20120704
  3. IDURSULFASE [Suspect]
     Active Substance: IDURSULFASE
     Dosage: 35 MILLIGRAM, 1/WEEK
     Route: 042
     Dates: start: 20100920
  4. ACETAMINOPHEN [Concomitant]
     Active Substance: ACETAMINOPHEN
     Indication: Pyrexia
     Dosage: 500 MILLIGRAM, Q8HR
     Route: 048
     Dates: start: 20211208, end: 20211210

REACTIONS (1)
  - Viral infection [Recovered/Resolved]

NARRATIVE: CASE EVENT DATE: 20211209
